FAERS Safety Report 18948207 (Version 1)
Quarter: 2021Q1

REPORT INFORMATION
  Report Type: Spontaneous
  Country: US (occurrence: US)
  Receive Date: 20210226
  Receipt Date: 20210226
  Transmission Date: 20210420
  Serious: No
  Sender: FDA-Public Use
  Company Number: US-009507513-2102USA006674

PATIENT
  Age: 61 Year
  Sex: Male

DRUGS (5)
  1. CUBICIN [Suspect]
     Active Substance: DAPTOMYCIN
     Indication: MENINGITIS ENTEROCOCCAL
  2. CUBICIN [Suspect]
     Active Substance: DAPTOMYCIN
     Indication: ENTEROCOCCAL INFECTION
     Dosage: 12 MG/KG
  3. LINEZOLID. [Concomitant]
     Active Substance: LINEZOLID
  4. TIGECYCLINE. [Concomitant]
     Active Substance: TIGECYCLINE
  5. IVERMECTIN. [Concomitant]
     Active Substance: IVERMECTIN

REACTIONS (1)
  - Product use in unapproved indication [Unknown]
